FAERS Safety Report 9682069 (Version 1)
Quarter: 2013Q4

REPORT INFORMATION
  Report Type: Spontaneous
  Country: US (occurrence: US)
  Receive Date: 20131111
  Receipt Date: 20131111
  Transmission Date: 20140711
  Serious: No
  Sender: FDA-Public Use
  Company Number: US-TEVA-443473USA

PATIENT
  Age: 5 Month
  Sex: Male

DRUGS (1)
  1. PROGLYCEM SUSPENSION [Suspect]

REACTIONS (2)
  - Incorrect dosage administered [Not Recovered/Not Resolved]
  - Product taste abnormal [Not Recovered/Not Resolved]
